FAERS Safety Report 21206336 (Version 1)
Quarter: 2022Q3

REPORT INFORMATION
  Report Type: Report from Study
  Country: GB (occurrence: GB)
  Receive Date: 20220812
  Receipt Date: 20220812
  Transmission Date: 20221026
  Serious: Yes (Hospitalization)
  Sender: FDA-Public Use
  Company Number: GB-PFIZER INC-PV202200036103

PATIENT
  Age: 63 Year
  Sex: Female
  Weight: 58.6 kg

DRUGS (9)
  1. SUNITINIB MALATE [Suspect]
     Active Substance: SUNITINIB MALATE
     Dosage: 25 MG (FOR 28 DAYS)
     Dates: start: 20220711, end: 20220801
  2. NIVOLUMAB [Suspect]
     Active Substance: NIVOLUMAB
     Dosage: 240 MG, EVERY 2 WEEKS
     Dates: start: 20220711
  3. ACETAMINOPHEN [Concomitant]
     Active Substance: ACETAMINOPHEN
     Indication: Pain
     Dosage: 1 G
     Route: 048
     Dates: start: 20220215
  4. RIFAMPIN [Concomitant]
     Active Substance: RIFAMPIN
     Indication: Wound infection
     Dosage: 300 MG
     Route: 048
     Dates: start: 20211220, end: 20220622
  5. CIPROFLOXACIN [Concomitant]
     Active Substance: CIPROFLOXACIN
     Indication: Wound infection
     Dosage: 500 MG
     Route: 048
     Dates: start: 20211220, end: 20220622
  6. DOXYCYCLINE [Concomitant]
     Active Substance: DOXYCYCLINE
     Indication: Wound infection
     Dosage: 100 MG
     Route: 048
     Dates: start: 20220622
  7. ZOPICLONE [Concomitant]
     Active Substance: ZOPICLONE
     Indication: Insomnia
     Dosage: 3.75 MG
     Route: 048
     Dates: start: 202110
  8. LOPERAMIDE [Concomitant]
     Active Substance: LOPERAMIDE
     Indication: Diarrhoea
     Dosage: 2 MG
     Route: 048
     Dates: start: 20220711
  9. DIFFLAM MOUTH [Concomitant]
     Indication: Mucosal inflammation
     Dosage: UNK
     Route: 048
     Dates: start: 20220726

REACTIONS (3)
  - Jaundice cholestatic [Unknown]
  - Autoimmune hepatitis [Unknown]
  - Stomatitis [Not Recovered/Not Resolved]

NARRATIVE: CASE EVENT DATE: 20220801
